FAERS Safety Report 26020726 (Version 1)
Quarter: 2025Q4

REPORT INFORMATION
  Report Type: Spontaneous
  Country: US (occurrence: None)
  Receive Date: 20251107
  Receipt Date: 20251107
  Transmission Date: 20260117
  Serious: Yes (Death)
  Sender: FDA-CTU
  Company Number: None

PATIENT
  Age: 83 Year
  Sex: Female

DRUGS (23)
  1. DUPIXENT [Suspect]
     Active Substance: DUPILUMAB
     Indication: Chronic obstructive pulmonary disease
     Dosage: FREQUENCY : EVERY OTHER WEEK;?
     Route: 058
     Dates: start: 20250117, end: 20251013
  2. GABAPENTIN [Concomitant]
     Active Substance: GABAPENTIN
  3. hc/apap [Concomitant]
  4. ALBUTEROL [Concomitant]
     Active Substance: ALBUTEROL
  5. budesonie [Concomitant]
  6. FLUCONAZOLE [Concomitant]
     Active Substance: FLUCONAZOLE
  7. HUMALOG [Concomitant]
     Active Substance: INSULIN LISPRO
  8. LANTUS [Concomitant]
     Active Substance: INSULIN GLARGINE
  9. PREDNISONE [Concomitant]
     Active Substance: PREDNISONE
  10. regIan [Concomitant]
  11. ALPRAZOLAM [Concomitant]
     Active Substance: ALPRAZOLAM
  12. AMLODIPINE [Concomitant]
     Active Substance: AMLODIPINE BESYLATE
  13. BUSPIRONE [Concomitant]
     Active Substance: BUSPIRONE HYDROCHLORIDE
  14. carvediolol [Concomitant]
  15. CLARITIN [Concomitant]
     Active Substance: LORATADINE
  16. FUROSEMIDE [Concomitant]
     Active Substance: FUROSEMIDE
  17. LOSARTAN [Concomitant]
     Active Substance: LOSARTAN
  18. NOVOLIN NOS [Concomitant]
     Active Substance: INSULIN HUMAN
  19. OMEPRAZOLE [Concomitant]
     Active Substance: OMEPRAZOLE
  20. POTASSIUM [Concomitant]
     Active Substance: POTASSIUM
  21. ROSUVASTATIN [Concomitant]
     Active Substance: ROSUVASTATIN
  22. SERTRALINE [Concomitant]
     Active Substance: SERTRALINE HYDROCHLORIDE
  23. TRELEGY ELLIPTA [Concomitant]
     Active Substance: FLUTICASONE FUROATE\UMECLIDINIUM BROMIDE\VILANTEROL TRIFENATATE

REACTIONS (3)
  - Fall [None]
  - Lower limb fracture [None]
  - Post procedural complication [None]

NARRATIVE: CASE EVENT DATE: 20251106
